FAERS Safety Report 20709546 (Version 1)
Quarter: 2022Q2

REPORT INFORMATION
  Report Type: Spontaneous
  Country: JP (occurrence: JP)
  Receive Date: 20220414
  Receipt Date: 20220414
  Transmission Date: 20220721
  Serious: Yes (Other)
  Sender: FDA-Public Use
  Company Number: JP-PFIZER INC-202200512191

PATIENT
  Age: 78 Year
  Sex: Female
  Weight: 34 kg

DRUGS (7)
  1. SUTENT [Suspect]
     Active Substance: SUNITINIB MALATE
     Indication: Renal cell carcinoma
     Dosage: 50 MG, DAILY
     Route: 048
     Dates: start: 20220303, end: 20220323
  2. SUTENT [Suspect]
     Active Substance: SUNITINIB MALATE
     Indication: Chemotherapy
  3. OLMESARTAN [Concomitant]
     Active Substance: OLMESARTAN
     Dosage: 10 MG, DAILY
     Route: 048
     Dates: start: 20211115
  4. NIFEDIPINE [Concomitant]
     Active Substance: NIFEDIPINE
     Dosage: 40 MG, 2X/DAY
     Dates: start: 20211115
  5. MIYA-BM [Concomitant]
     Active Substance: CLOSTRIDIUM BUTYRICUM SPORES STRAIN M-55
     Dosage: 3 DF, 3X/DAY
     Route: 048
     Dates: start: 20211115
  6. MAGNESIUM OXIDE [Concomitant]
     Active Substance: MAGNESIUM OXIDE
     Dosage: 990 MG, 3X/DAY
     Route: 048
     Dates: start: 20211115
  7. SENNOSIDES [Concomitant]
     Active Substance: SENNOSIDES
     Dosage: 8 MG, DAILY
     Dates: start: 20211115

REACTIONS (1)
  - Haematotoxicity [Not Recovered/Not Resolved]

NARRATIVE: CASE EVENT DATE: 20220316
